FAERS Safety Report 7324106-2 (Version None)
Quarter: 2011Q1

REPORT INFORMATION
  Report Type: 
  Country: None (occurrence: None)
  Receive Date: 20110217
  Receipt Date: 20110205
  Transmission Date: 20110831
  Serious: Yes (Life-Threatening, Hospitalization)
  Sender: FDA-Public Use
  Company Number: 2010-2536

PATIENT
  Sex: Female

DRUGS (2)
  1. ABOBOTULINOMTOXIN A [Suspect]
  2. DYSPORT [Suspect]
     Indication: PRODUCT USED FOR UNKNOWN INDICATION
     Dosage: NOT REPORTED, SINGLE CYCLE;

REACTIONS (1)
  - ANAPHYLACTIC SHOCK [None]
